FAERS Safety Report 7518311-X (Version None)
Quarter: 2011Q2

REPORT INFORMATION
  Report Type: 
  Country: None (occurrence: None)
  Receive Date: 20110602
  Receipt Date: 20110525
  Transmission Date: 20111010
  Serious: Yes (Hospitalization)
  Sender: FDA-Public Use
  Company Number: NL-MEDIMMUNE-MEDI-0011928

PATIENT
  Sex: Male
  Weight: 8.81 kg

DRUGS (2)
  1. SYNAGIS [Suspect]
     Route: 030
     Dates: start: 20101005, end: 20101105
  2. SYNAGIS [Suspect]
     Route: 030
     Dates: start: 20101203, end: 20110127

REACTIONS (4)
  - INNER EAR INFLAMMATION [None]
  - DIARRHOEA [None]
  - RESPIRATORY TRACT INFECTION [None]
  - DYSPNOEA [None]
